FAERS Safety Report 17573027 (Version 1)
Quarter: 2020Q1

REPORT INFORMATION
  Report Type: Report from Study
  Country: US (occurrence: US)
  Receive Date: 20200323
  Receipt Date: 20200323
  Transmission Date: 20200409
  Serious: Yes (Hospitalization, Other)
  Sender: FDA-Public Use
  Company Number: NVSC2019US087038

PATIENT
  Age: 2 Year
  Sex: Male
  Weight: 10.4 kg

DRUGS (9)
  1. PREDNISOLONE. [Concomitant]
     Active Substance: PREDNISOLONE
     Dosage: 10.50 MG, QD
     Route: 065
     Dates: start: 2019, end: 20190706
  2. VITAMIN D [Concomitant]
     Active Substance: VITAMIN D NOS
     Indication: PRODUCT USED FOR UNKNOWN INDICATION
     Dosage: 1200.00 IU, QD
     Route: 048
  3. PREDNISOLONE. [Concomitant]
     Active Substance: PREDNISOLONE
     Dosage: 1.70 ML, QD
     Route: 065
     Dates: start: 20190707, end: 20190717
  4. OMEPRAZOLE. [Concomitant]
     Active Substance: OMEPRAZOLE
     Indication: GASTROOESOPHAGEAL REFLUX DISEASE
     Route: 065
  5. ALBUTEROL. [Concomitant]
     Active Substance: ALBUTEROL
     Indication: PRODUCT USED FOR UNKNOWN INDICATION
     Dosage: 3.00 ML, PRN
     Route: 065
  6. PREDNISOLONE. [Concomitant]
     Active Substance: PREDNISOLONE
     Indication: PRODUCT USED FOR UNKNOWN INDICATION
     Dosage: 21 MG, QD (FOR 4 DAYS)
     Route: 065
     Dates: start: 2019, end: 2019
  7. PREDNISOLONE. [Concomitant]
     Active Substance: PREDNISOLONE
     Dosage: 2.70 MG
     Route: 065
     Dates: start: 20190718, end: 20190806
  8. RANITIDINE. [Concomitant]
     Active Substance: RANITIDINE
     Indication: PRODUCT USED FOR UNKNOWN INDICATION
     Dosage: 39.00 MG, BID
     Route: 065
  9. ZOLGENSMA [Suspect]
     Active Substance: ONASEMNOGENE ABEPARVOVEC-XIOI
     Indication: SPINAL MUSCULAR ATROPHY
     Dosage: 1.1X10^14 VG/KG, TOTAL VOLUME OF THE INFUSION 57.8 ML, SINGLE, ONCE/SINGLE
     Route: 042
     Dates: start: 20190605, end: 20190605

REACTIONS (6)
  - Pneumonia [Recovered/Resolved]
  - Respiratory distress [Unknown]
  - Tachypnoea [Unknown]
  - Choking [Recovered/Resolved]
  - Grunting [Unknown]
  - Pyrexia [Unknown]

NARRATIVE: CASE EVENT DATE: 20190703
